FAERS Safety Report 14674836 (Version 8)
Quarter: 2019Q1

REPORT INFORMATION
  Report Type: Report from Study
  Country: MX (occurrence: MX)
  Receive Date: 20180323
  Receipt Date: 20190312
  Transmission Date: 20190417
  Serious: Yes (Hospitalization, Other)
  Sender: FDA-Public Use
  Company Number: MX-SA-2018SA080273

PATIENT
  Age: 45 Year
  Sex: Female
  Weight: 67 kg

DRUGS (1)
  1. ALEMTUZUMAB [Suspect]
     Active Substance: ALEMTUZUMAB
     Indication: MULTIPLE SCLEROSIS
     Dosage: 1 VIAL,QD
     Route: 041
     Dates: start: 20180126

REACTIONS (22)
  - Cough [Recovered/Resolved]
  - Laboratory test abnormal [Unknown]
  - Mean platelet volume decreased [Not Recovered/Not Resolved]
  - Red blood cell count decreased [Unknown]
  - Monocyte percentage increased [Unknown]
  - Urinary sediment present [Unknown]
  - White blood cell count decreased [Not Recovered/Not Resolved]
  - Sinusitis [Recovering/Resolving]
  - Bronchitis [Recovered/Resolved]
  - Urine analysis abnormal [Unknown]
  - Mean cell volume increased [Unknown]
  - Neutrophil count decreased [Unknown]
  - White blood cell count decreased [Recovered/Resolved]
  - Urine abnormality [Unknown]
  - Protein urine [Unknown]
  - Abdominal pain upper [Recovered/Resolved]
  - Anaemia [Recovered/Resolved]
  - Red blood cell count decreased [Recovered/Resolved]
  - Lymphocyte percentage decreased [Not Recovered/Not Resolved]
  - Pneumonitis [Recovered/Resolved]
  - Lymphocyte count decreased [Not Recovered/Not Resolved]
  - Pyrexia [Recovered/Resolved]

NARRATIVE: CASE EVENT DATE: 20180302
